FAERS Safety Report 9554919 (Version 2)
Quarter: 2013Q4

REPORT INFORMATION
  Report Type: Spontaneous
  Country: US (occurrence: US)
  Receive Date: 20130926
  Receipt Date: 20131111
  Transmission Date: 20140711
  Serious: No
  Sender: FDA-Public Use
  Company Number: US-BIOGENIDEC-2013BI091212

PATIENT
  Age: 56 Year
  Sex: Female

DRUGS (10)
  1. TYSABRI [Suspect]
     Indication: MULTIPLE SCLEROSIS
     Route: 042
  2. TYSABRI [Suspect]
     Indication: MULTIPLE SCLEROSIS
     Route: 042
     Dates: start: 20130626
  3. AVONEX [Concomitant]
     Indication: MULTIPLE SCLEROSIS
     Route: 030
  4. PHERNERGAN [Concomitant]
     Indication: NAUSEA
     Dates: start: 2008
  5. TRILEPTAL [Concomitant]
     Indication: FACIAL PAIN
  6. HYDROCODONE [Concomitant]
     Indication: SLEEP DISORDER
  7. VALIUM [Concomitant]
     Indication: SLEEP DISORDER
  8. BETASERON [Concomitant]
     Indication: MULTIPLE SCLEROSIS
  9. REBIF [Concomitant]
     Indication: MULTIPLE SCLEROSIS
  10. COPAXONE [Concomitant]
     Indication: MULTIPLE SCLEROSIS

REACTIONS (11)
  - Balance disorder [Recovered/Resolved]
  - Decreased appetite [Unknown]
  - White blood cell count increased [Not Recovered/Not Resolved]
  - Hyperaesthesia [Not Recovered/Not Resolved]
  - Retching [Recovered/Resolved]
  - Feeling abnormal [Not Recovered/Not Resolved]
  - Anxiety [Not Recovered/Not Resolved]
  - Fall [Recovered/Resolved]
  - Dizziness [Not Recovered/Not Resolved]
  - Nausea [Recovered/Resolved]
  - Fatigue [Not Recovered/Not Resolved]
